FAERS Safety Report 9867912 (Version 3)
Quarter: 2014Q3

REPORT INFORMATION
  Report Type: Report from Study
  Country: DE (occurrence: DE)
  Receive Date: 20140204
  Receipt Date: 20140804
  Transmission Date: 20150326
  Serious: Yes (Other)
  Sender: FDA-Public Use
  Company Number: PHHY2014DE012999

PATIENT
  Age: 42 Year
  Sex: Female
  Weight: 76.9 kg

DRUGS (3)
  1. DEKRISTOL [Concomitant]
     Active Substance: CHOLECALCIFEROL
     Indication: VITAMIN D DEFICIENCY
     Dosage: 20.000 IU, PER WEEK
     Route: 048
  2. NEUREXAN [Concomitant]
     Indication: SLEEP DISORDER
     Dosage: 1.2 MG, DAILY
     Route: 048
     Dates: start: 20130410, end: 201401
  3. SOM230 [Suspect]
     Active Substance: PASIREOTIDE
     Indication: PITUITARY-DEPENDENT CUSHING^S SYNDROME
     Dosage: 0.6 MG, DAILY
     Route: 058
     Dates: start: 20130822

REACTIONS (1)
  - Type 2 diabetes mellitus [Not Recovered/Not Resolved]

NARRATIVE: CASE EVENT DATE: 20131125
